FAERS Safety Report 19603253 (Version 1)
Quarter: 2021Q3

REPORT INFORMATION
  Report Type: Spontaneous
  Country: CA (occurrence: CA)
  Receive Date: 20210723
  Receipt Date: 20210723
  Transmission Date: 20211014
  Serious: Yes (Other)
  Sender: FDA-Public Use
  Company Number: CA-UCBSA-2021034869

PATIENT
  Age: 17 Year
  Sex: Female
  Weight: 48 kg

DRUGS (3)
  1. BRIVLERA [Suspect]
     Active Substance: BRIVARACETAM
     Indication: GENERALISED TONIC-CLONIC SEIZURE
     Dosage: 100 MILLIGRAM, 2X/DAY (BID)
  2. BRIVLERA [Suspect]
     Active Substance: BRIVARACETAM
     Indication: OFF LABEL USE
  3. LAMOTRIGINE. [Concomitant]
     Active Substance: LAMOTRIGINE
     Indication: PRODUCT USED FOR UNKNOWN INDICATION
     Route: 065

REACTIONS (7)
  - Eyelid ptosis [Unknown]
  - Inappropriate affect [Recovered/Resolved]
  - Off label use [Unknown]
  - Exophthalmos [Unknown]
  - Dysphonia [Unknown]
  - Lacrimation increased [Unknown]
  - Movement disorder [Unknown]
